FAERS Safety Report 9368910 (Version 4)
Quarter: 2015Q3

REPORT INFORMATION
  Report Type: Report from Study
  Country: AR (occurrence: AR)
  Receive Date: 20130626
  Receipt Date: 20150720
  Transmission Date: 20151125
  Serious: Yes (Hospitalization, Other)
  Sender: FDA-Public Use
  Company Number: AR-AMGEN-ARGCT2013044626

PATIENT
  Age: 62 Year
  Sex: Male

DRUGS (8)
  1. METHOTREXATE [Concomitant]
     Active Substance: METHOTREXATE
     Indication: RHEUMATOID ARTHRITIS
     Dosage: 20 MG, WEEKLY
     Route: 048
     Dates: start: 20120307
  2. ENALAPRIL MALEATE. [Concomitant]
     Active Substance: ENALAPRIL MALEATE
     Indication: HYPERTENSION
     Dosage: 5 MG, EVERY DAY
     Route: 048
     Dates: start: 20120328
  3. ETANERCEPT [Suspect]
     Active Substance: ETANERCEPT
     Indication: RHEUMATOID ARTHRITIS
     Dosage: MOST RECENT DOSE ADMINISTERED ON 29/MAY/2013 (50 MG, WEEKLY)
     Route: 058
     Dates: start: 20120704, end: 20130529
  4. FOLIC ACID. [Concomitant]
     Active Substance: FOLIC ACID
     Indication: RHEUMATOID ARTHRITIS
     Dosage: 5 MG, WEEKLY
     Route: 048
     Dates: start: 20120308
  5. ACETYLSALICYLIC ACID [Concomitant]
     Active Substance: ASPIRIN
     Indication: HYPERTENSION
     Dosage: 100 MG, EVERY DAY
     Route: 048
     Dates: start: 20120328
  6. DICLOFENAC [Concomitant]
     Active Substance: DICLOFENAC
     Indication: RHEUMATOID ARTHRITIS
     Dosage: 75 MG, 2X/DAY
     Route: 048
     Dates: start: 20120308
  7. ENALAPRIL MALEATE. [Concomitant]
     Active Substance: ENALAPRIL MALEATE
     Dosage: 5 MG, 2X/DAY
     Route: 048
     Dates: start: 20130312
  8. ENALAPRIL MALEATE. [Concomitant]
     Active Substance: ENALAPRIL MALEATE
     Dosage: 20 MG, 2X/DAY
     Route: 048
     Dates: start: 20130311

REACTIONS (1)
  - Diarrhoea [Recovered/Resolved]

NARRATIVE: CASE EVENT DATE: 20130601
